FAERS Safety Report 10289759 (Version 1)
Quarter: 2014Q3

REPORT INFORMATION
  Report Type: Spontaneous
  Country: US (occurrence: None)
  Receive Date: 20140708
  Receipt Date: 20140708
  Transmission Date: 20150326
  Serious: Yes (Death, Other)
  Sender: FDA-Public Use
  Company Number: KAD201406-000696

PATIENT
  Age: 61 Year
  Sex: Male
  Weight: 75.28 kg

DRUGS (12)
  1. RIBASPHERE RIBAPAK [Suspect]
     Active Substance: RIBAVIRIN
     Indication: HEPATITIS C
     Route: 048
     Dates: start: 20140613, end: 20140616
  2. LASIX [Concomitant]
     Active Substance: FUROSEMIDE
  3. LACTULOSE (LACTULOSE) (LACTULOSE) [Concomitant]
  4. LAMOTRIGINE (LAMOTRIGINE) (LAMOTRIGINE) [Concomitant]
     Active Substance: LAMOTRIGINE
  5. ZOFRAN (ONDANSETRON) (ONDANSETRON) [Concomitant]
  6. NEOMYCIN SULFATE (NEOMYCIN SULFATE) (NEOMYCIN SULFATE) [Concomitant]
  7. SYNTHROID (LEVOTHYROXINE SODIUM) (LEVOTHYROXINE SODIUM) [Concomitant]
  8. ALDACTONE (SPIRONOLACTONE) (SPIRONOLACTONE) [Concomitant]
  9. DIFLUCAN (FLUCONAZOLE) (FLUCONAZOLE) [Concomitant]
  10. SOVALDI [Suspect]
     Active Substance: SOFOSBUVIR
     Indication: HEPATITIS C
     Route: 048
     Dates: start: 20140613, end: 20140616
  11. BUPROPION HYDROCHLORIDE (BUPROPION HYDROCHLORIDE) (BUPROPION HYDROCHLRORIDE) [Concomitant]
  12. NEXIUM (ESOMEPRAZOLE MAGNESIUM) (ESOMEPRAZOLE MAGNESIUM) [Concomitant]

REACTIONS (5)
  - Vomiting [None]
  - Prothrombin time [None]
  - Hepatitis C [None]
  - Hepatic cirrhosis [None]
  - Loss of consciousness [None]

NARRATIVE: CASE EVENT DATE: 20140616
